FAERS Safety Report 14485698 (Version 1)
Quarter: 2018Q1

REPORT INFORMATION
  Report Type: Spontaneous
  Country: IT (occurrence: IT)
  Receive Date: 20180205
  Receipt Date: 20180205
  Transmission Date: 20180509
  Serious: Yes (Hospitalization)
  Sender: FDA-Public Use
  Company Number: IT-TEVA-2018-IT-853938

PATIENT
  Age: 73 Year
  Sex: Male

DRUGS (8)
  1. SILODYX [Concomitant]
     Active Substance: SILODOSIN
     Dosage: 8 MG
  2. AMLODIPINE [Concomitant]
     Active Substance: AMLODIPINE BESYLATE
  3. ALLOPURINOL. [Concomitant]
     Active Substance: ALLOPURINOL
  4. AVODART [Concomitant]
     Active Substance: DUTASTERIDE
  5. FUROSEMIDE. [Suspect]
     Active Substance: FUROSEMIDE
     Indication: HYPERTENSION
     Dosage: 25 MG DAILY
     Route: 048
     Dates: start: 20170101, end: 20170503
  6. BISOPROLOL FUMARATE. [Concomitant]
     Active Substance: BISOPROLOL FUMARATE
     Dosage: 3.75 MG
  7. ATORVASTATIN [Suspect]
     Active Substance: ATORVASTATIN
     Indication: DYSLIPIDAEMIA
     Dosage: 40 MG DAILY
     Route: 048
     Dates: start: 20170101, end: 20170503
  8. RAMIPRIL. [Concomitant]
     Active Substance: RAMIPRIL

REACTIONS (3)
  - Pancreatitis acute [Unknown]
  - Vomiting [Unknown]
  - Abdominal pain [Unknown]

NARRATIVE: CASE EVENT DATE: 20170503
